FAERS Safety Report 11164920 (Version 1)
Quarter: 2015Q2

REPORT INFORMATION
  Report Type: Spontaneous
  Country: US (occurrence: US)
  Receive Date: 20150604
  Receipt Date: 20150604
  Transmission Date: 20150821
  Serious: No
  Sender: FDA-Public Use
  Company Number: US-BIOGENIDEC-2015BI075079

PATIENT
  Sex: Female

DRUGS (2)
  1. TECFIDERA [Suspect]
     Active Substance: DIMETHYL FUMARATE
     Indication: RELAPSING-REMITTING MULTIPLE SCLEROSIS
  2. COPAXONE [Concomitant]
     Active Substance: GLATIRAMER ACETATE

REACTIONS (3)
  - General symptom [Recovered/Resolved]
  - Malaise [Recovered/Resolved]
  - Exercise tolerance decreased [Recovered/Resolved]
